FAERS Safety Report 9765022 (Version 1)
Quarter: 2013Q4

REPORT INFORMATION
  Report Type: Spontaneous
  Country: JP (occurrence: JP)
  Receive Date: 20131217
  Receipt Date: 20131217
  Transmission Date: 20140711
  Serious: Yes (Other)
  Sender: FDA-Public Use
  Company Number: JP-MPIJNJ-2013JNJ001308

PATIENT
  Sex: 0

DRUGS (1)
  1. VELCADE [Suspect]
     Indication: PLASMA CELL MYELOMA
     Route: 065

REACTIONS (7)
  - Cardiac disorder [Unknown]
  - Neutropenia [Unknown]
  - Platelet count decreased [Unknown]
  - Pneumonia [Unknown]
  - Infection [Unknown]
  - Neuropathy peripheral [Unknown]
  - Rash [Unknown]
